FAERS Safety Report 6923921-4 (Version None)
Quarter: 2010Q3

REPORT INFORMATION
  Report Type: 
  Country: None (occurrence: None)
  Receive Date: 20100813
  Receipt Date: 20100804
  Transmission Date: 20110219
  Serious: Yes (Death, Hospitalization)
  Sender: FDA-Public Use
  Company Number: ES-ELI_LILLY_AND_COMPANY-ES201008001410

PATIENT
  Sex: Female
  Weight: 75 kg

DRUGS (4)
  1. FORTEO [Suspect]
     Indication: OSTEOPOROSIS
     Dosage: 20 UG, DAILY (1/D)
     Route: 058
     Dates: start: 20100408, end: 20100628
  2. ASPIRIN [Concomitant]
     Dosage: 1 D/F, DAILY (1/D)
     Route: 048
  3. GELOCATIL [Concomitant]
     Indication: PAIN
     Route: 048
  4. NOLOTIL [Concomitant]
     Indication: PAIN
     Route: 048

REACTIONS (2)
  - MULTI-ORGAN FAILURE [None]
  - OEDEMA PERIPHERAL [None]
